FAERS Safety Report 20937475 (Version 2)
Quarter: 2022Q2

REPORT INFORMATION
  Report Type: Spontaneous
  Country: US (occurrence: US)
  Receive Date: 20220609
  Receipt Date: 20220630
  Transmission Date: 20220721
  Serious: Yes (Hospitalization)
  Sender: FDA-Public Use
  Company Number: US-TEVA-2022-US-2043625

PATIENT
  Age: 23 Year
  Sex: Male

DRUGS (3)
  1. HYDROCORTISONE [Suspect]
     Active Substance: HYDROCORTISONE
     Indication: Primary adrenal insufficiency
     Dosage: STRESS IV THERAPY
     Route: 042
  2. Omnipod [Concomitant]
     Indication: Type 1 diabetes mellitus
     Route: 065
  3. SALINE [Concomitant]
     Active Substance: SODIUM CHLORIDE
     Indication: Hyponatraemia
     Dosage: HYPERTONIC SOLUTION
     Route: 065

REACTIONS (1)
  - Hyperglycaemia [Unknown]
